FAERS Safety Report 7868482-0 (Version None)
Quarter: 2011Q4

REPORT INFORMATION
  Report Type: 
  Country: None (occurrence: None)
  Receive Date: 20111028
  Receipt Date: 20101213
  Transmission Date: 20120403
  Serious: Yes (Hospitalization)
  Sender: FDA-Public Use
  Company Number: US-AMGEN-USASP2010008879

PATIENT
  Age: 39 Year
  Sex: Male

DRUGS (8)
  1. CLONAZEPAM [Concomitant]
     Dosage: .5 MG, UNK
     Route: 048
  2. DESIPRAMIDE HCL [Concomitant]
     Dosage: 25 MG, UNK
     Route: 048
  3. CALCIUM +D [Concomitant]
     Dosage: 600 MG, UNK
     Route: 048
  4. COLACE [Concomitant]
     Dosage: 100 MG, UNK
     Route: 048
  5. ENBREL [Suspect]
     Indication: PRODUCT USED FOR UNKNOWN INDICATION
     Dosage: 50 MG, 2 TIMES/WK
     Route: 058
  6. OXYCODONE HCL [Concomitant]
     Dosage: 20 MG, UNK
     Route: 048
  7. PREDNISONE [Concomitant]
     Dosage: 20 MG, UNK
     Route: 048
  8. METHADONE HCL [Concomitant]
     Dosage: 40 MG, UNK
     Route: 048

REACTIONS (1)
  - BACTERAEMIA [None]
